FAERS Safety Report 6273885-4 (Version None)
Quarter: 2009Q3

REPORT INFORMATION
  Report Type: 
  Country: None (occurrence: None)
  Receive Date: 20090715
  Receipt Date: 20090703
  Transmission Date: 20100115
  Serious: Yes (Disabling)
  Sender: FDA-Public Use
  Company Number: TUK2009A00115

PATIENT

DRUGS (6)
  1. ACTOS [Suspect]
     Indication: DIABETES MELLITUS
     Dosage: ORAL
  2. AMIAS 4MG TABLETS (CANDESARTAN CILEXETIL) [Concomitant]
  3. LERCANIDIPINE [Concomitant]
  4. METFORMIN HCL [Concomitant]
  5. METOPROLOL SUCCINATE [Concomitant]
  6. PARACETAMOL (PARACETAMOL) [Concomitant]

REACTIONS (1)
  - TENDON RUPTURE [None]
